FAERS Safety Report 8533357-0 (Version None)
Quarter: 2012Q3

REPORT INFORMATION
  Report Type: 
  Country: None (occurrence: None)
  Receive Date: 20120724
  Receipt Date: 20120716
  Transmission Date: 20120928
  Serious: Yes (Hospitalization)
  Sender: FDA-Public Use
  Company Number: PHHY2012FR061931

PATIENT
  Sex: Female

DRUGS (3)
  1. ESCITALOPRAM [Concomitant]
     Dosage: 20 MG, UNK
  2. TEGRETOL [Suspect]
     Indication: PETIT MAL EPILEPSY
     Dosage: 200 MG DAILY
     Route: 048
     Dates: start: 20120424
  3. NEXIUM [Concomitant]
     Dosage: 20 MG, UNK

REACTIONS (20)
  - MYALGIA [None]
  - ASPARTATE AMINOTRANSFERASE INCREASED [None]
  - URINARY TRACT INFECTION [None]
  - URINARY TRACT PAIN [None]
  - RASH PRURITIC [None]
  - RASH GENERALISED [None]
  - RASH MACULO-PAPULAR [None]
  - LYMPHADENOPATHY [None]
  - ALANINE AMINOTRANSFERASE INCREASED [None]
  - GAMMA-GLUTAMYLTRANSFERASE INCREASED [None]
  - ARTHRALGIA [None]
  - ASTHENIA [None]
  - C-REACTIVE PROTEIN INCREASED [None]
  - PYREXIA [None]
  - BLOOD ALKALINE PHOSPHATASE INCREASED [None]
  - PRURITUS [None]
  - LIP OEDEMA [None]
  - DRUG RASH WITH EOSINOPHILIA AND SYSTEMIC SYMPTOMS [None]
  - CHILLS [None]
  - BACK PAIN [None]
